FAERS Safety Report 6019801-1 (Version None)
Quarter: 2008Q4

REPORT INFORMATION
  Report Type: 
  Country: None (occurrence: None)
  Receive Date: 20081224
  Receipt Date: 20081217
  Transmission Date: 20090506
  Serious: Yes (Other)
  Sender: FDA-Public Use
  Company Number: DE-ROXANE LABORATORIES, INC.-2008-RO-00450RO

PATIENT
  Sex: Female

DRUGS (2)
  1. THEOPHYLLINE [Suspect]
     Indication: ASTHMA
  2. ALBUTEROL [Suspect]
     Indication: ASTHMA

REACTIONS (2)
  - BLOOD PYRUVIC ACID ABNORMAL [None]
  - LACTIC ACIDOSIS [None]
